FAERS Safety Report 9664296 (Version 1)
Quarter: 2013Q4

REPORT INFORMATION
  Report Type: Spontaneous
  Country: CH (occurrence: CH)
  Receive Date: 20131101
  Receipt Date: 20131101
  Transmission Date: 20140711
  Serious: Yes (Hospitalization)
  Sender: FDA-Public Use
  Company Number: CH-ROCHE-1293945

PATIENT
  Age: 45 Year
  Sex: Female

DRUGS (11)
  1. TORA-DOL [Suspect]
     Indication: PRODUCT USED FOR UNKNOWN INDICATION
     Route: 041
     Dates: start: 20130323, end: 20130329
  2. DAFALGAN [Suspect]
     Indication: PRODUCT USED FOR UNKNOWN INDICATION
     Route: 048
     Dates: start: 20130320, end: 20130402
  3. DAFALGAN [Suspect]
     Dosage: EFFERVESCENT
     Route: 048
  4. BUPIVACAINE [Concomitant]
     Route: 040
     Dates: start: 20130318, end: 20130328
  5. TRAMAL [Concomitant]
     Route: 065
     Dates: start: 20130329, end: 20130401
  6. TRAMAL [Concomitant]
     Dosage: SUSPENSION PUSH, 12.5 MG MAX. 4 X 4 PUSHES/DAY (=4X 50 MG)
     Route: 065
  7. NOVALGIN [Concomitant]
     Route: 041
     Dates: start: 20130320, end: 20130326
  8. CLEXANE [Concomitant]
     Route: 058
     Dates: start: 20130321
  9. ZOLPIDEM TARTRATE [Concomitant]
     Route: 065
  10. PANTOZOL (SWITZERLAND) [Concomitant]
     Route: 048
     Dates: start: 20130327, end: 20130404
  11. NEXIUM [Concomitant]
     Route: 041
     Dates: start: 20130322, end: 20130325

REACTIONS (2)
  - Liver injury [Recovered/Resolved]
  - Jaundice [Recovered/Resolved]
